FAERS Safety Report 17913391 (Version 1)
Quarter: 2020Q2

REPORT INFORMATION
  Report Type: Spontaneous
  Country: US (occurrence: US)
  Receive Date: 20200618
  Receipt Date: 20200618
  Transmission Date: 20200714
  Serious: No
  Sender: FDA-Public Use
  Company Number: US-THERAPEUTICSMD-2020TMD01952

PATIENT
  Age: 70 Year
  Sex: Female
  Weight: 54.42 kg

DRUGS (6)
  1. IMVEXXY [Suspect]
     Active Substance: ESTRADIOL
     Dosage: 2X/WEEK BEFORE BED
     Route: 067
     Dates: start: 2020
  2. IMVEXXY [Suspect]
     Active Substance: ESTRADIOL
     Indication: VULVOVAGINAL DRYNESS
     Dosage: 1X/DAY BEFORE BED
     Route: 067
     Dates: start: 202002, end: 2020
  3. WOMEN^S MULTIVITAMIN [Concomitant]
  4. PRIMIDONE. [Concomitant]
     Active Substance: PRIMIDONE
  5. BLACK ELDERBERRY SYRUP [Concomitant]
  6. MULTI-COLLAGEN [Concomitant]

REACTIONS (3)
  - Vaginal discharge [Not Recovered/Not Resolved]
  - Product residue present [Not Recovered/Not Resolved]
  - Off label use [Not Recovered/Not Resolved]

NARRATIVE: CASE EVENT DATE: 202002
